FAERS Safety Report 6889973-5 (Version None)
Quarter: 2010Q3

REPORT INFORMATION
  Report Type: 
  Country: None (occurrence: None)
  Receive Date: 20100730
  Receipt Date: 20080619
  Transmission Date: 20110219
  Serious: No
  Sender: FDA-Public Use
  Company Number: US-PFIZER INC-2008051457

PATIENT
  Sex: Male

DRUGS (2)
  1. LIPITOR [Suspect]
  2. NIACIN [Suspect]

REACTIONS (3)
  - FLUSHING [None]
  - HIGH DENSITY LIPOPROTEIN DECREASED [None]
  - LIPOPROTEIN (A) INCREASED [None]
